FAERS Safety Report 7490288 (Version 43)
Quarter: 2020Q2

REPORT INFORMATION
  Report Type: Report from Study
  Country: CA (occurrence: CA)
  Receive Date: 20100720
  Receipt Date: 20200413
  Transmission Date: 20200714
  Serious: Yes (Other)
  Sender: FDA-Public Use
  Company Number: PHHY2009CA42077

PATIENT
  Age: 56 Year
  Sex: Female

DRUGS (16)
  1. SANDOSTATIN LAR DEPOT [Suspect]
     Active Substance: OCTREOTIDE ACETATE
     Dosage: 40 MG, QW3
     Route: 030
     Dates: start: 20101213
  2. SANDOSTATIN LAR DEPOT [Suspect]
     Active Substance: OCTREOTIDE ACETATE
     Indication: PANCREATIC NEUROENDOCRINE TUMOUR METASTATIC
     Dosage: 30 MG, QMO
     Route: 030
     Dates: start: 20090623
  3. SANDOSTATIN LAR DEPOT [Suspect]
     Active Substance: OCTREOTIDE ACETATE
     Dosage: 40 MG, QMO
     Route: 030
     Dates: start: 20091124
  4. SANDOSTATIN LAR DEPOT [Suspect]
     Active Substance: OCTREOTIDE ACETATE
     Dosage: 30 MG, UNK
     Route: 030
     Dates: start: 20170308
  5. SANDOSTATIN LAR DEPOT [Suspect]
     Active Substance: OCTREOTIDE ACETATE
     Dosage: 60 MG, QMO
     Route: 030
  6. SANDOSTATIN LAR DEPOT [Suspect]
     Active Substance: OCTREOTIDE ACETATE
     Dosage: 60 MG, QMO
     Route: 030
     Dates: start: 20090707
  7. ADALAT CC [Concomitant]
     Active Substance: NIFEDIPINE
     Indication: HYPERTENSION
     Dosage: 30 MG, QD
     Route: 065
  8. SANDOSTATIN LAR DEPOT [Suspect]
     Active Substance: OCTREOTIDE ACETATE
     Dosage: 30 MG, QMO
     Route: 030
     Dates: start: 20110817
  9. SANDOSTATIN LAR DEPOT [Suspect]
     Active Substance: OCTREOTIDE ACETATE
     Dosage: 30 MG, QMO
     Route: 030
     Dates: start: 20140512
  10. PREDNISONE. [Concomitant]
     Active Substance: PREDNISONE
     Indication: PRODUCT USED FOR UNKNOWN INDICATION
     Dosage: UNK UNK, QD (40 MG OF PREDNISONE DAILY TO BE TAKEN AS 8 5MG PILLS AFTER EATING)
     Route: 048
     Dates: start: 20200309
  11. AFINITOR [Suspect]
     Active Substance: EVEROLIMUS
     Indication: NEOPLASM MALIGNANT
     Dosage: 7.5 MG, QD (ON 20 UNSPECIFIED MONTH)
     Route: 048
     Dates: start: 2018
  12. PROPANOLOL [Suspect]
     Active Substance: PROPRANOLOL HYDROCHLORIDE
     Indication: HYPERTENSION
     Dosage: 20 MG, QD
     Route: 065
  13. BENADRYL [Concomitant]
     Active Substance: DIPHENHYDRAMINE HYDROCHLORIDE
     Indication: PRODUCT USED FOR UNKNOWN INDICATION
     Dosage: 1 DF, Q4H
     Route: 065
     Dates: start: 20200306
  14. SANDOSTATIN LAR DEPOT [Suspect]
     Active Substance: OCTREOTIDE ACETATE
     Dosage: 30 MG, QMO
     Route: 030
     Dates: start: 20160118
  15. SANDOSTATIN LAR DEPOT [Suspect]
     Active Substance: OCTREOTIDE ACETATE
     Dosage: 60 MG, QMO
     Route: 030
     Dates: start: 20200107
  16. SANDOSTATIN LAR DEPOT [Suspect]
     Active Substance: OCTREOTIDE ACETATE
     Dosage: 30 MG, QW3
     Route: 030
     Dates: start: 20101213

REACTIONS (32)
  - Malignant neoplasm progression [Unknown]
  - Pain [Unknown]
  - Decreased appetite [Unknown]
  - Fatigue [Unknown]
  - Liver disorder [Unknown]
  - Rash [Unknown]
  - Pruritus [Unknown]
  - Swelling face [Unknown]
  - Hepatic pain [Unknown]
  - Influenza [Unknown]
  - Headache [Unknown]
  - Abdominal pain [Unknown]
  - Injection site pain [Unknown]
  - Hypertrophic cardiomyopathy [Unknown]
  - Blood pressure increased [Unknown]
  - Feeling abnormal [Unknown]
  - Procedural pain [Unknown]
  - Tenderness [Unknown]
  - Stress [Unknown]
  - Heart rate increased [Unknown]
  - Abdominal discomfort [Unknown]
  - Inflammation [Unknown]
  - Urticaria [Unknown]
  - Injection site mass [Not Recovered/Not Resolved]
  - Palpitations [Unknown]
  - Diarrhoea [Unknown]
  - Asthenia [Unknown]
  - Hyperhidrosis [Unknown]
  - Cholelithiasis [Unknown]
  - Lip swelling [Unknown]
  - Needle issue [Unknown]
  - Inappropriate schedule of product administration [Unknown]

NARRATIVE: CASE EVENT DATE: 20131001
